FAERS Safety Report 16292746 (Version 2)
Quarter: 2019Q2

REPORT INFORMATION
  Report Type: Spontaneous
  Country: US (occurrence: US)
  Receive Date: 20190509
  Receipt Date: 20190517
  Transmission Date: 20190711
  Serious: Yes (Death, Hospitalization, Other)
  Sender: FDA-Public Use
  Company Number: US-ACTELION-A-NJ2019-190259

PATIENT
  Age: 67 Year
  Sex: Female
  Weight: 108.84 kg

DRUGS (13)
  1. SPIRONOLACTONE. [Concomitant]
     Active Substance: SPIRONOLACTONE
  2. IPRATROPIUM [Concomitant]
     Active Substance: IPRATROPIUM
  3. VENTAVIS [Suspect]
     Active Substance: ILOPROST
     Indication: PULMONARY ARTERIAL HYPERTENSION
     Dosage: 5 MCG, 6 TO 9 TIMES PER DAY
     Route: 055
  4. TRAZODONE [Concomitant]
     Active Substance: TRAZODONE HYDROCHLORIDE
  5. VENTAVIS [Suspect]
     Active Substance: ILOPROST
     Dosage: 5 TIMES PER DAY
     Route: 055
  6. LASIX [Concomitant]
     Active Substance: FUROSEMIDE
  7. OXYGEN. [Concomitant]
     Active Substance: OXYGEN
     Dosage: 10 L
  8. VENTAVIS [Suspect]
     Active Substance: ILOPROST
     Dosage: 5 MCG
     Route: 055
     Dates: end: 20190405
  9. FAMOTIDINE. [Concomitant]
     Active Substance: FAMOTIDINE
  10. LOSARTAN AND HYDROCHLOROTHIAZIDE [Concomitant]
     Active Substance: HYDROCHLOROTHIAZIDE\LOSARTAN POTASSIUM
  11. OXYGEN. [Concomitant]
     Active Substance: OXYGEN
     Dosage: 6 L
  12. VENLAFAXINE XR [Concomitant]
     Active Substance: VENLAFAXINE HYDROCHLORIDE
  13. OXYGEN. [Concomitant]
     Active Substance: OXYGEN
     Dosage: 5 L

REACTIONS (44)
  - Condition aggravated [Fatal]
  - Depression [Unknown]
  - Psoriasis [Unknown]
  - Hypersensitivity [Unknown]
  - Acute respiratory failure [Fatal]
  - Chronic obstructive pulmonary disease [Fatal]
  - Cognitive disorder [Unknown]
  - Weight decreased [Unknown]
  - Respiratory acidosis [Fatal]
  - Pulmonary hilum mass [Unknown]
  - Pulmonary mass [Unknown]
  - Right ventricular dysfunction [Unknown]
  - Pulmonary arterial pressure abnormal [Unknown]
  - Cough [Unknown]
  - Sputum discoloured [Unknown]
  - Ear congestion [Unknown]
  - Pollakiuria [Unknown]
  - Urinary incontinence [Unknown]
  - Lymphadenopathy [Unknown]
  - Unevaluable event [Unknown]
  - Fluid overload [Fatal]
  - Hyperkalaemia [Fatal]
  - Oxygen saturation decreased [Unknown]
  - Wheezing [Unknown]
  - Epistaxis [Unknown]
  - Atelectasis [Unknown]
  - Right ventricular failure [Fatal]
  - Right ventricular dilatation [Unknown]
  - Respiratory failure [Fatal]
  - Pneumonia [Fatal]
  - Dyspnoea [Unknown]
  - Neoplasm malignant [Unknown]
  - Secretion discharge [Unknown]
  - Cardiac failure congestive [Unknown]
  - Hilar lymphadenopathy [Unknown]
  - Heart rate increased [Unknown]
  - Sputum retention [Unknown]
  - Eye pruritus [Unknown]
  - Rash [Unknown]
  - Obstructive airways disorder [Unknown]
  - Adenoma benign [Unknown]
  - Infection [Unknown]
  - General physical health deterioration [Fatal]
  - Dyspnoea exertional [Unknown]

NARRATIVE: CASE EVENT DATE: 20171017
